FAERS Safety Report 8879840 (Version 2)
Quarter: 2012Q4

REPORT INFORMATION
  Report Type: Report from Study
  Country: CI (occurrence: CI)
  Receive Date: 20121031
  Receipt Date: 20121105
  Transmission Date: 20130627
  Serious: Yes (Other)
  Sender: FDA-Public Use
  Company Number: CI-GILEAD-2012-0063756

PATIENT
  Age: 23 Year
  Sex: Female

DRUGS (4)
  1. EMTRICITABINE/TENOFOVIR DISOPROXIL FUMARATE [Suspect]
     Indication: HIV INFECTION
     Dosage: 1 DF, QD
     Route: 048
     Dates: start: 20100818
  2. LOPINAVIR W/RITONAVIR [Suspect]
     Indication: HIV INFECTION
     Dosage: 1 DF, QD
     Route: 048
     Dates: start: 20100818
  3. CO-TRIMOXAZOLE [Suspect]
     Indication: OPPORTUNISTIC INFECTION PROPHYLAXIS
     Dosage: 1 DF, QD
     Route: 048
     Dates: start: 20091116
  4. COARTEM [Concomitant]
     Indication: MALARIA
     Dosage: UNK, QD
     Route: 048
     Dates: start: 20120305, end: 20120307

REACTIONS (1)
  - Abortion spontaneous [Recovered/Resolved]
